FAERS Safety Report 13388885 (Version 1)
Quarter: 2017Q1

REPORT INFORMATION
  Report Type: Report from Study
  Country: IT (occurrence: IT)
  Receive Date: 20170331
  Receipt Date: 20170331
  Transmission Date: 20170429
  Serious: Yes (Other)
  Sender: FDA-Public Use
  Company Number: IT-ROCHE-1909964

PATIENT

DRUGS (2)
  1. VINORELBINE [Suspect]
     Active Substance: VINORELBINE\VINORELBINE TARTRATE
     Indication: BREAST CANCER METASTATIC
     Dosage: 20-25 MG/M2 ON DAY 1-8, EVERY 3 WEEKS FOR A MAXIMUM 6 CYCLES
     Route: 065
  2. CAPECITABINE. [Suspect]
     Active Substance: CAPECITABINE
     Indication: BREAST CANCER METASTATIC
     Dosage: 1000-1250 MG/M2 ON DAY 1-14
     Route: 065

REACTIONS (3)
  - Neutropenia [Unknown]
  - Neutropenic sepsis [Unknown]
  - Gastrointestinal toxicity [Unknown]
